FAERS Safety Report 16713241 (Version 1)
Quarter: 2019Q3

REPORT INFORMATION
  Report Type: Spontaneous
  Country: US (occurrence: US)
  Receive Date: 20190818
  Receipt Date: 20190818
  Transmission Date: 20191004
  Serious: Yes (Hospitalization, Other)
  Sender: FDA-Public Use
  Company Number: US-TORRENT-00009087

PATIENT
  Age: 22 Year

DRUGS (2)
  1. FLUOXETINE [Suspect]
     Active Substance: FLUOXETINE HYDROCHLORIDE
     Indication: DEPRESSION
     Dosage: UNKNOWN
  2. BUPROPION. [Interacting]
     Active Substance: BUPROPION
     Indication: DEPRESSION
     Dosage: UNKNOWN

REACTIONS (5)
  - Serotonin syndrome [Recovered/Resolved]
  - Drug interaction [Unknown]
  - Status epilepticus [Recovered/Resolved]
  - Overdose [Unknown]
  - Lactic acidosis [Unknown]
